FAERS Safety Report 8105369-2 (Version None)
Quarter: 2012Q1

REPORT INFORMATION
  Report Type: 
  Country: None (occurrence: None)
  Receive Date: 20120201
  Receipt Date: 20120126
  Transmission Date: 20120608
  Serious: Yes (Hospitalization)
  Sender: FDA-Public Use
  Company Number: PHHO2012NL001787

PATIENT
  Age: 75 Year
  Sex: Male
  Weight: 78 kg

DRUGS (2)
  1. CERTICAN [Suspect]
     Indication: RENAL TRANSPLANT
     Dosage: UNK
     Route: 048
  2. TACROLIMUS [Concomitant]
     Indication: RENAL TRANSPLANT
     Dosage: 6 MG, BID
     Dates: start: 20110816

REACTIONS (2)
  - GASTRIC CANCER [None]
  - IRON DEFICIENCY ANAEMIA [None]
